FAERS Safety Report 4645353-4 (Version None)
Quarter: 2005Q2

REPORT INFORMATION
  Report Type: 
  Country: None (occurrence: None)
  Receive Date: 20050425
  Receipt Date: 20050413
  Transmission Date: 20051028
  Serious: Yes (Hospitalization)
  Sender: FDA-Public Use
  Company Number: 2005059768

PATIENT
  Age: 85 Year
  Sex: Male

DRUGS (9)
  1. ATORVASTATIN CALCIUM [Suspect]
     Indication: ILL-DEFINED DISORDER
     Dosage: 80 MG (20 MG, 1 IN 1 TOTAL), ORAL
     Route: 048
     Dates: start: 20050325, end: 20050325
  2. LORAZEPAM [Suspect]
     Indication: ILL-DEFINED DISORDER
     Dosage: 6 MG (1 MG , 1 IN 1 TOTAL), ORAL
     Route: 048
     Dates: start: 20050325, end: 20050325
  3. PANTOPRAZOLE SODIUM [Concomitant]
     Indication: ILL-DEFINED DISORDER
     Dosage: 100 MG (1 IN 1  TOTAL), ORAL
     Route: 048
     Dates: start: 20050325, end: 20050325
  4. CANDESARTAN CILEXETIL (CANDESARTAN CILEXETIL) [Suspect]
     Indication: ILL-DEFINED DISORDER
     Dosage: 24 MG ( 1 IN 1 TOTAL), ORAL
     Route: 048
     Dates: start: 20050325, end: 20050325
  5. SOTALOL HCL [Suspect]
     Indication: ILL-DEFINED DISORDER
     Dosage: (1 IN 1 TOTAL), ORAL
     Route: 048
     Dates: start: 20050325, end: 20050325
  6. DYAZIDE [Suspect]
     Indication: ILL-DEFINED DISORDER
     Dosage: 4 TABLETS ( 1 IN  1 TOTAL), ORAL
     Route: 048
     Dates: start: 20050325, end: 20050325
  7. PHENYTOIN [Concomitant]
  8. PHENPROCOUMON (PHENPROCOUMON) [Concomitant]
  9. ASPIRIN [Concomitant]

REACTIONS (4)
  - BRADYCARDIA [None]
  - HYPOTENSION [None]
  - INTENTIONAL MISUSE [None]
  - SOMNOLENCE [None]
